FAERS Safety Report 5957960-7 (Version None)
Quarter: 2008Q4

REPORT INFORMATION
  Report Type: 
  Country: None (occurrence: None)
  Receive Date: 20081119
  Receipt Date: 20081111
  Transmission Date: 20090506
  Serious: Yes (Hospitalization)
  Sender: FDA-Public Use
  Company Number: JP-ABBOTT-08P-087-0488113-00

PATIENT
  Age: 59 Year
  Sex: Male
  Weight: 87 kg

DRUGS (22)
  1. KLARICID TABLETS [Suspect]
     Indication: PRODUCTIVE COUGH
     Route: 048
     Dates: start: 20081015, end: 20081023
  2. KLARICID TABLETS [Suspect]
     Indication: RESPIRATORY TRACT INFECTION
  3. FUDOSTEINE [Suspect]
     Indication: PRODUCTIVE COUGH
     Route: 048
     Dates: start: 20081015, end: 20081023
  4. FUDOSTEINE [Suspect]
     Indication: RESPIRATORY TRACT INFECTION
  5. SERETIDE [Concomitant]
     Indication: DRUG USE FOR UNKNOWN INDICATION
     Route: 055
     Dates: start: 20080929
  6. AMBROXOL HYDROCHLORIDE [Concomitant]
     Indication: DRUG USE FOR UNKNOWN INDICATION
     Route: 048
     Dates: start: 20080929
  7. MAGNESIUM OXIDE [Concomitant]
     Indication: DRUG USE FOR UNKNOWN INDICATION
     Route: 048
     Dates: start: 20081023
  8. RAMATROBAN [Concomitant]
     Indication: DRUG USE FOR UNKNOWN INDICATION
     Route: 048
     Dates: start: 20081023
  9. ROXATIDINE ACETATE HCL [Concomitant]
     Indication: DRUG USE FOR UNKNOWN INDICATION
     Route: 048
     Dates: start: 20081023
  10. MAPROTILINE HYDROCHLORIDE [Concomitant]
     Indication: DRUG USE FOR UNKNOWN INDICATION
     Route: 048
     Dates: start: 20081023
  11. TAMSULOSIN HCL [Concomitant]
     Indication: DRUG USE FOR UNKNOWN INDICATION
     Route: 048
     Dates: start: 20081023
  12. ETHYL LOFLAZEPATE [Concomitant]
     Indication: DRUG USE FOR UNKNOWN INDICATION
     Route: 048
     Dates: start: 20081023
  13. ALOSENN [Concomitant]
     Indication: DRUG USE FOR UNKNOWN INDICATION
     Route: 048
     Dates: start: 20081023
  14. TEPRENONE [Concomitant]
     Indication: DRUG USE FOR UNKNOWN INDICATION
     Route: 048
     Dates: start: 20081023
  15. ZOLPIDEM TARTRATE [Concomitant]
     Indication: DRUG USE FOR UNKNOWN INDICATION
     Route: 048
     Dates: start: 20081023
  16. CERNILTON [Concomitant]
     Indication: DRUG USE FOR UNKNOWN INDICATION
     Route: 048
     Dates: start: 20081023
  17. TIZANIDINE HYDROCHLORIDE [Concomitant]
     Indication: DRUG USE FOR UNKNOWN INDICATION
     Route: 048
     Dates: start: 20081023
  18. LIMAPROST [Concomitant]
     Indication: DRUG USE FOR UNKNOWN INDICATION
     Route: 048
     Dates: start: 20081023
  19. AMLODIN OD [Concomitant]
     Indication: DRUG USE FOR UNKNOWN INDICATION
     Route: 048
     Dates: start: 20081023
  20. TELMISARTAN [Concomitant]
     Indication: DRUG USE FOR UNKNOWN INDICATION
     Route: 048
     Dates: start: 20081023
  21. NICORANDIL [Concomitant]
     Indication: DRUG USE FOR UNKNOWN INDICATION
     Route: 048
     Dates: start: 20081023
  22. DICLOFENAC SODIUM [Concomitant]
     Indication: DRUG USE FOR UNKNOWN INDICATION
     Dosage: ROUTE:  PR
     Dates: start: 20081023

REACTIONS (3)
  - CHROMATURIA [None]
  - HEPATIC FUNCTION ABNORMAL [None]
  - MYALGIA [None]
